FAERS Safety Report 8844263 (Version 2)
Quarter: 2012Q4

REPORT INFORMATION
  Report Type: 
  Country: US (occurrence: US)
  Receive Date: 20121017
  Receipt Date: 20121218
  Transmission Date: 20130627
  Serious: Yes (Hospitalization)
  Sender: FDA-Public Use
  Company Number: US-BAYER-2012-106323

PATIENT
  Age: 47 Year
  Sex: Female
  Weight: 113.38 kg

DRUGS (11)
  1. YASMIN [Suspect]
     Indication: BIRTH CONTROL
  2. SYNTHROID [Concomitant]
     Indication: HYPOTHYROIDISM
     Dosage: 100 ?g, daily
     Route: 048
     Dates: start: 20071026, end: 20080621
  3. BENICAR [Concomitant]
     Dosage: 20 mg, daily
     Route: 048
     Dates: start: 20071120, end: 20080707
  4. LIPITOR [Concomitant]
     Indication: DYSLIPIDEMIA
     Dosage: 20 mg, daily
     Route: 048
     Dates: start: 20071120
  5. METFORMIN [Concomitant]
     Dosage: 2000 mg, HS, daily
     Route: 048
     Dates: start: 20071126, end: 20080429
  6. PROPECIA [Concomitant]
     Dosage: 1 mg, UNK
     Dates: start: 20080110, end: 20080318
  7. METROGEL [Concomitant]
     Dosage: UNK
     Dates: start: 20080208
  8. AZMACORT [Concomitant]
     Indication: ASTHMA
     Dosage: 2 puff(s), daily
     Route: 045
     Dates: start: 2008
  9. BENZALKONIUM CHLORIDE [Concomitant]
     Dosage: 50 mg, UNK
     Route: 048
     Dates: start: 2008
  10. SPIRONOLACTONE [Concomitant]
     Dosage: 25 mg, daily
     Route: 048
  11. GLUCOPHAGE [Concomitant]
     Indication: NON-INSULIN-DEPENDENT DIABETES MELLITUS

REACTIONS (2)
  - Pulmonary embolism [None]
  - Deep vein thrombosis [None]
